FAERS Safety Report 9544105 (Version 2)
Quarter: 2013Q3

REPORT INFORMATION
  Report Type: Spontaneous
  Country: CN (occurrence: CN)
  Receive Date: 20130923
  Receipt Date: 20130923
  Transmission Date: 20140515
  Serious: Yes (Hospitalization)
  Sender: FDA-Public Use
  Company Number: CN-009507513-1301CHN008600

PATIENT
  Age: 7 Day
  Sex: Male
  Weight: 3 kg

DRUGS (6)
  1. DIPROSPAN [Suspect]
     Indication: HAEMANGIOMA-THROMBOCYTOPENIA SYNDROME
     Dosage: 1 ML (7 MG) TWICE A WEEK
     Route: 026
  2. DIPROSPAN [Suspect]
     Dosage: UNK
     Route: 026
  3. METHYLPREDNISOLONE [Suspect]
     Indication: HAEMANGIOMA-THROMBOCYTOPENIA SYNDROME
     Dosage: 6 MG PER DAY IN DIVIDED DOSES FOR 10 DAYS
     Route: 048
  4. METHYLPREDNISOLONE [Suspect]
     Dosage: 10 MG/KG/DAY FOR 3 DAYS
     Route: 042
  5. METHYLPREDNISOLONE [Suspect]
     Dosage: UNK
     Route: 042
  6. DEXAMETHASONE [Concomitant]
     Dosage: 0.32 MG/KG/DAY FOR 3 DAYS
     Route: 042

REACTIONS (1)
  - Cushingoid [Recovered/Resolved]
